FAERS Safety Report 19552943 (Version 7)
Quarter: 2023Q2

REPORT INFORMATION
  Report Type: Report from Study
  Country: US (occurrence: US)
  Receive Date: 20210715
  Receipt Date: 20230621
  Transmission Date: 20230721
  Serious: Yes (Hospitalization, Other)
  Sender: FDA-Public Use
  Company Number: US-TAKEDA-2021TUS038962

PATIENT
  Age: 27 Year
  Sex: Female

DRUGS (24)
  1. TEDUGLUTIDE [Suspect]
     Active Substance: TEDUGLUTIDE
     Indication: Short-bowel syndrome
     Dosage: 3.1 MILLIGRAM, QD
     Route: 042
     Dates: start: 20200630
  2. TEDUGLUTIDE [Suspect]
     Active Substance: TEDUGLUTIDE
     Indication: Short-bowel syndrome
     Dosage: 3.1 MILLIGRAM, QD
     Route: 042
     Dates: start: 20200630
  3. TEDUGLUTIDE [Suspect]
     Active Substance: TEDUGLUTIDE
     Indication: Short-bowel syndrome
     Dosage: 3.1 MILLIGRAM, QD
     Route: 042
     Dates: start: 20200630
  4. TEDUGLUTIDE [Suspect]
     Active Substance: TEDUGLUTIDE
     Indication: Short-bowel syndrome
     Dosage: 3.1 MILLIGRAM, QD
     Route: 042
     Dates: start: 20200630
  5. LEVOFLOXACIN [Concomitant]
     Active Substance: LEVOFLOXACIN
     Indication: Bacteraemia
     Dosage: 750 MILLIGRAM, QD
     Route: 042
     Dates: start: 20210101, end: 20210115
  6. LEVOFLOXACIN [Concomitant]
     Active Substance: LEVOFLOXACIN
     Dosage: 750 MILLIGRAM, QD
     Route: 042
     Dates: start: 20210218, end: 20210226
  7. CHOLECALCIFEROL [Concomitant]
     Active Substance: CHOLECALCIFEROL
     Indication: Vitamin D deficiency
     Dosage: 50000 INTERNATIONAL UNIT, QD
     Route: 048
     Dates: start: 20200812, end: 20201105
  8. CHOLECALCIFEROL [Concomitant]
     Active Substance: CHOLECALCIFEROL
     Dosage: 3000 INTERNATIONAL UNIT, QD
     Route: 048
     Dates: start: 20201106
  9. FAMOTIDINE [Concomitant]
     Active Substance: FAMOTIDINE
     Indication: Gastrooesophageal reflux disease
     Dosage: 20 MILLIGRAM
     Route: 048
     Dates: start: 20200207, end: 20201105
  10. ACETAMINOPHEN [Concomitant]
     Active Substance: ACETAMINOPHEN
     Indication: Abdominal pain
     Dosage: 650 MILLIGRAM
     Route: 048
     Dates: start: 20190708
  11. ALPRAZOLAM [Concomitant]
     Active Substance: ALPRAZOLAM
     Indication: Anxiety
     Dosage: 0.5 MILLIGRAM
     Route: 048
     Dates: start: 20180725, end: 20210305
  12. AMITRIPTYLINE [Concomitant]
     Active Substance: AMITRIPTYLINE
     Indication: Generalised anxiety disorder
     Dosage: 100 MILLIGRAM, QD
     Route: 048
     Dates: start: 20180531
  13. CLONIDINE [Concomitant]
     Active Substance: CLONIDINE
     Indication: Insomnia
     Dosage: 0.3 MILLIGRAM
     Route: 048
     Dates: start: 20190630
  14. HYDROCORTISONE [Concomitant]
     Active Substance: HYDROCORTISONE
     Indication: Adrenal insufficiency
     Dosage: 0.5 MILLIGRAM, BID
     Route: 048
     Dates: start: 20190702
  15. HYOSCYAMINE [Concomitant]
     Active Substance: HYOSCYAMINE
     Indication: Abdominal pain
     Dosage: 0.12 MILLIGRAM
     Route: 048
     Dates: start: 20190529
  16. IPRATROPIUM [Concomitant]
     Active Substance: IPRATROPIUM
     Indication: Bronchospasm
     Dosage: 5 MILLILITER
     Route: 050
  17. LEVETIRACETAM [Concomitant]
     Active Substance: LEVETIRACETAM
     Indication: Seizure
     Dosage: 500 MILLIGRAM, BID
     Route: 048
     Dates: start: 20170306
  18. PANTOPRAZOLE [Concomitant]
     Active Substance: PANTOPRAZOLE
     Indication: Dyspepsia
     Dosage: 40 MILLIGRAM, QD
     Route: 048
     Dates: start: 20190108, end: 20201105
  19. STELARA [Concomitant]
     Active Substance: USTEKINUMAB
     Indication: Crohn^s disease
     Dosage: 90 MILLIGRAM
     Route: 058
     Dates: start: 20170916
  20. TRAZODONE [Concomitant]
     Active Substance: TRAZODONE HYDROCHLORIDE
     Indication: Bronchospasm
     Dosage: 100 MILLIGRAM, QD
     Route: 048
     Dates: start: 20170830
  21. ZOLPIDEM [Concomitant]
     Active Substance: ZOLPIDEM TARTRATE
     Indication: Bronchospasm
     Dosage: 5 MILLIGRAM, QD
     Route: 050
     Dates: start: 20171016, end: 20200305
  22. PROMETHAZINE [Concomitant]
     Active Substance: PROMETHAZINE HYDROCHLORIDE
     Indication: Nausea
     Dosage: 25 MILLIGRAM
     Route: 048
     Dates: start: 20171214
  23. ERGOCALCIFEROL [Concomitant]
     Active Substance: ERGOCALCIFEROL
     Indication: Vitamin D deficiency
     Dosage: UNK
     Route: 048
     Dates: start: 20220811
  24. ELIQUIS [Concomitant]
     Active Substance: APIXABAN
     Indication: Pulmonary embolism
     Dosage: 5 MILLIGRAM, BID
     Route: 048
     Dates: start: 202203

REACTIONS (4)
  - Vascular device infection [Recovered/Resolved]
  - Sepsis [Recovered/Resolved]
  - Pneumonia [Recovered/Resolved]
  - COVID-19 [Recovered/Resolved]

NARRATIVE: CASE EVENT DATE: 20201224
